APPROVED DRUG PRODUCT: ALLOPURINOL
Active Ingredient: ALLOPURINOL
Strength: 300MG
Dosage Form/Route: TABLET;ORAL
Application: A203154 | Product #002 | TE Code: AB
Applicant: ACCORD HEALTHCARE INC
Approved: May 6, 2013 | RLD: No | RS: No | Type: RX